FAERS Safety Report 20805665 (Version 1)
Quarter: 2022Q2

REPORT INFORMATION
  Report Type: Spontaneous
  Country: FR (occurrence: FR)
  Receive Date: 20220510
  Receipt Date: 20220510
  Transmission Date: 20220720
  Serious: Yes (Hospitalization, Other)
  Sender: FDA-Public Use
  Company Number: FR-AFSSAPS-AVTO20220028

PATIENT
  Age: 26 Year
  Sex: Male

DRUGS (4)
  1. ACETAMINOPHEN [Suspect]
     Active Substance: ACETAMINOPHEN
     Indication: Self-medication
     Dosage: UNK
     Route: 048
     Dates: start: 20220203, end: 20220203
  2. PREGABALIN [Suspect]
     Active Substance: PREGABALIN
     Indication: Self-medication
     Dosage: 10 DOSAGE FORM (10CP (DOSE UNKNOWN) BETWEEN 5 A.M. AND 7 P.M.)
     Route: 048
     Dates: start: 20220203, end: 20220203
  3. TRAMADOL [Suspect]
     Active Substance: TRAMADOL
     Indication: Self-medication
     Dosage: UNK
     Route: 048
     Dates: start: 20220203, end: 20220203
  4. CANNABIS SATIVA SUBSP. INDICA TOP [Suspect]
     Active Substance: CANNABIS SATIVA SUBSP. INDICA TOP
     Indication: Product used for unknown indication
     Dosage: 8 DOSAGE FORM, ONCE A DAY (8 SEALS/D)
     Route: 055

REACTIONS (3)
  - Intentional product misuse [Recovered/Resolved]
  - Drug dependence [Not Recovered/Not Resolved]
  - Abdominal pain [Recovered/Resolved]

NARRATIVE: CASE EVENT DATE: 20170101
